FAERS Safety Report 9628482 (Version 3)
Quarter: 2013Q4

REPORT INFORMATION
  Report Type: Spontaneous
  Country: US (occurrence: US)
  Receive Date: 20131017
  Receipt Date: 20131031
  Transmission Date: 20140711
  Serious: Yes (Death)
  Sender: FDA-Public Use
  Company Number: US-PFIZER INC-2013295804

PATIENT
  Age: 83 Year
  Sex: Female

DRUGS (2)
  1. SUTENT [Suspect]
     Indication: RENAL CANCER
     Dosage: 25 MG, UNK
     Dates: start: 20090423
  2. VOTRIENT [Suspect]
     Dosage: UNK
     Dates: start: 20130522

REACTIONS (3)
  - Disease progression [Fatal]
  - Renal cancer [Fatal]
  - Oedema peripheral [Unknown]
